FAERS Safety Report 7454284-6 (Version None)
Quarter: 2011Q2

REPORT INFORMATION
  Report Type: 
  Country: None (occurrence: None)
  Receive Date: 20110503
  Receipt Date: 20110425
  Transmission Date: 20111010
  Serious: Yes (Hospitalization)
  Sender: FDA-Public Use
  Company Number: US-US-EMD SERONO, INC.-7037849

PATIENT
  Sex: Female
  Weight: 95 kg

DRUGS (3)
  1. ELAVIL [Concomitant]
  2. REBIF [Suspect]
     Indication: MULTIPLE SCLEROSIS
     Route: 058
     Dates: start: 20090331
  3. NEURONTIN [Concomitant]

REACTIONS (1)
  - INTERVERTEBRAL DISC PROTRUSION [None]
